FAERS Safety Report 6920819-2 (Version None)
Quarter: 2010Q3

REPORT INFORMATION
  Report Type: 
  Country: None (occurrence: None)
  Receive Date: 20100812
  Receipt Date: 20100805
  Transmission Date: 20110219
  Serious: Yes (Hospitalization)
  Sender: FDA-Public Use
  Company Number: FR-SANOFI-AVENTIS-2010SA046098

PATIENT
  Age: 67 Year
  Sex: Male

DRUGS (7)
  1. OFLOCET [Suspect]
     Route: 065
  2. RIFADIN [Suspect]
     Route: 065
     Dates: start: 20100315, end: 20100329
  3. DALACIN [Suspect]
     Route: 065
  4. ORBENIN CAP [Suspect]
     Route: 065
     Dates: start: 20100310, end: 20100315
  5. GENTALLINE [Suspect]
     Route: 065
     Dates: start: 20100310, end: 20100315
  6. CEFROM [Concomitant]
     Indication: PRODUCT USED FOR UNKNOWN INDICATION
     Route: 042
  7. HEPARIN [Concomitant]
     Indication: PRODUCT USED FOR UNKNOWN INDICATION
     Route: 065

REACTIONS (1)
  - VITAMIN K DEFICIENCY [None]
